FAERS Safety Report 18476476 (Version 1)
Quarter: 2020Q4

REPORT INFORMATION
  Report Type: Spontaneous
  Country: US (occurrence: US)
  Receive Date: 20201107
  Receipt Date: 20201107
  Transmission Date: 20210114
  Serious: Yes (Other)
  Sender: FDA-Public Use
  Company Number: US-AUROBINDO-AUR-APL-2020-054640

PATIENT
  Age: 5 Month
  Sex: Male
  Weight: 7.1 kg

DRUGS (3)
  1. MILRINONE LACTATE. [Suspect]
     Active Substance: MILRINONE LACTATE
     Indication: PRODUCT USED FOR UNKNOWN INDICATION
     Dosage: UNK
     Route: 065
  2. AMIODARONE [Concomitant]
     Active Substance: AMIODARONE
     Indication: ATRIAL TACHYCARDIA
     Dosage: 2.5 MILLIGRAM/KILOGRAM
     Route: 040
  3. ESMOLOL HYDROCHLORIDE. [Suspect]
     Active Substance: ESMOLOL HYDROCHLORIDE
     Indication: ATRIAL TACHYCARDIA
     Dosage: 100 MICROGRAM/KILOGRAM PER MINUTE
     Route: 065

REACTIONS (1)
  - Drug ineffective [Unknown]
